FAERS Safety Report 22657935 (Version 1)
Quarter: 2023Q2

REPORT INFORMATION
  Report Type: Spontaneous
  Country: US (occurrence: US)
  Receive Date: 20230630
  Receipt Date: 20230630
  Transmission Date: 20230722
  Serious: No
  Sender: FDA-Public Use
  Company Number: US-GLAXOSMITHKLINE-USCH2023031782

PATIENT
  Age: 62 Year
  Sex: Female

DRUGS (1)
  1. VOLTAREN [Suspect]
     Active Substance: DICLOFENAC SODIUM
     Indication: Arthropathy
     Dosage: UNK, (50G) QID (4 TIMES A DAY FOR 9 DAYS)
     Route: 065
     Dates: start: 20230620, end: 20230628

REACTIONS (1)
  - Drug ineffective [Unknown]
